FAERS Safety Report 22620876 (Version 1)
Quarter: 2023Q2

REPORT INFORMATION
  Report Type: Report from Study
  Country: IT (occurrence: IT)
  Receive Date: 20230620
  Receipt Date: 20230620
  Transmission Date: 20230722
  Serious: Yes (Hospitalization)
  Sender: FDA-Public Use
  Company Number: IT-UCBSA-2023030679

PATIENT
  Sex: Female

DRUGS (1)
  1. NEUPRO [Suspect]
     Active Substance: ROTIGOTINE
     Indication: Parkinson^s disease
     Dosage: 4 MILLIGRAM, ONCE DAILY (QD)
     Route: 062
     Dates: start: 202304, end: 2023

REACTIONS (6)
  - Rash [Unknown]
  - Swollen tongue [Unknown]
  - Speech disorder [Unknown]
  - Dyspnoea [Unknown]
  - Toxicity to various agents [Unknown]
  - Drug ineffective [Unknown]
